FAERS Safety Report 13557007 (Version 1)
Quarter: 2017Q2

REPORT INFORMATION
  Report Type: Spontaneous
  Country: US (occurrence: US)
  Receive Date: 20170517
  Receipt Date: 20170517
  Transmission Date: 20170830
  Serious: Yes (Life-Threatening, Disabling)
  Sender: FDA-Public Use
  Company Number: None

PATIENT
  Age: 36 Year
  Sex: Female
  Weight: 99 kg

DRUGS (2)
  1. LUPRON DEPOT [Suspect]
     Active Substance: LEUPROLIDE ACETATE
     Indication: ENDOMETRIOSIS
     Route: 058
     Dates: start: 20170228, end: 20170301
  2. OXYCODONE [Concomitant]
     Active Substance: OXYCODONE

REACTIONS (6)
  - Depression [None]
  - Thirst [None]
  - Suicidal ideation [None]
  - Pollakiuria [None]
  - Failure to thrive [None]
  - Amnesia [None]

NARRATIVE: CASE EVENT DATE: 20170228
